FAERS Safety Report 22521864 (Version 22)
Quarter: 2024Q2

REPORT INFORMATION
  Report Type: Report from Study
  Country: TW (occurrence: TW)
  Receive Date: 20230605
  Receipt Date: 20240610
  Transmission Date: 20240716
  Serious: Yes (Death, Life-Threatening, Hospitalization, Other)
  Sender: FDA-Public Use
  Company Number: TW-002147023-NVSC2022TW255189

PATIENT
  Age: 30 Year
  Sex: Female
  Weight: 87 kg

DRUGS (15)
  1. MYFORTIC [Suspect]
     Active Substance: MYCOPHENOLATE SODIUM
     Indication: Lupus nephritis
     Dosage: 180 MG, TID
     Route: 048
     Dates: start: 20220916, end: 20220929
  2. MYFORTIC [Suspect]
     Active Substance: MYCOPHENOLATE SODIUM
     Dosage: 180 MG, TID
     Route: 048
     Dates: start: 20221125
  3. MYFORTIC [Suspect]
     Active Substance: MYCOPHENOLATE SODIUM
     Dosage: 180 MG
     Route: 048
     Dates: start: 20230224, end: 20230529
  4. MYFORTIC [Suspect]
     Active Substance: MYCOPHENOLATE SODIUM
     Dosage: 180 MG
     Route: 048
     Dates: start: 20230113, end: 20230223
  5. MANNITOL [Concomitant]
     Active Substance: MANNITOL
     Indication: Product used for unknown indication
     Dosage: UNK, Q6H ON 04 JUN
     Route: 065
  6. MANNITOL [Concomitant]
     Active Substance: MANNITOL
     Dosage: UNK, Q8H ON TAPERED 04 JUN
     Route: 065
  7. MANNITOL [Concomitant]
     Active Substance: MANNITOL
     Dosage: UNK, Q12H ON 05 JUN
     Route: 065
  8. MANNITOL [Concomitant]
     Active Substance: MANNITOL
     Dosage: UNK, QD ON 06 JUN
     Route: 065
  9. DEXAMETHASONE [Concomitant]
     Active Substance: DEXAMETHASONE
     Indication: Product used for unknown indication
     Dosage: UNK, Q6H ON 04 JUN
     Route: 042
  10. DEXAMETHASONE [Concomitant]
     Active Substance: DEXAMETHASONE
     Dosage: UNK, Q8H TAPERED ON 04 JUN
     Route: 042
  11. DEXAMETHASONE [Concomitant]
     Active Substance: DEXAMETHASONE
     Dosage: UNK, Q12H ON 05 JUN
     Route: 042
  12. DEXAMETHASONE [Concomitant]
     Active Substance: DEXAMETHASONE
     Dosage: UNK, QD ON 06 JUN
     Route: 042
  13. CEFTRIAXONE [Concomitant]
     Active Substance: CEFTRIAXONE\CEFTRIAXONE SODIUM
     Indication: Urinary tract infection
     Dosage: UNK
     Route: 042
     Dates: start: 20230408, end: 20230415
  14. BISOPROLOL FUMARATE [Concomitant]
     Active Substance: BISOPROLOL FUMARATE
     Indication: Systemic lupus erythematosus
     Dosage: UNK
     Route: 048
     Dates: start: 20220422
  15. MOSAPRIDE CITRATE [Concomitant]
     Active Substance: MOSAPRIDE CITRATE
     Indication: Gastritis
     Dosage: UNK
     Route: 048
     Dates: start: 20230428, end: 20230606

REACTIONS (62)
  - Limb mass [Fatal]
  - Cardiac arrest [Fatal]
  - Listeria sepsis [Recovered/Resolved]
  - Pyrexia [Recovered/Resolved]
  - Pyrexia [Recovered/Resolved]
  - Staphylococcal bacteraemia [Recovering/Resolving]
  - Chills [Recovered/Resolved]
  - Flank pain [Recovered/Resolved]
  - Bone pain [Recovered/Resolved]
  - Dysuria [Recovered/Resolved]
  - Shock symptom [Not Recovered/Not Resolved]
  - Seizure [Not Recovered/Not Resolved]
  - Cellulitis [Recovered/Resolved]
  - Muscle necrosis [Recovering/Resolving]
  - Pulmonary oedema [Not Recovered/Not Resolved]
  - Arthralgia [Recovered/Resolved]
  - Hallucination [Recovering/Resolving]
  - Ketoacidosis [Not Recovered/Not Resolved]
  - Atrial flutter [Not Recovered/Not Resolved]
  - Lactic acidosis [Not Recovered/Not Resolved]
  - Colitis ischaemic [Not Recovered/Not Resolved]
  - Pancreatitis acute [Not Recovered/Not Resolved]
  - Acute respiratory failure [Not Recovered/Not Resolved]
  - Renal tubular acidosis [Not Recovered/Not Resolved]
  - Brain neoplasm [Recovering/Resolving]
  - Thrombocytopenia [Not Recovered/Not Resolved]
  - Brain abscess [Recovering/Resolving]
  - Intestinal ischaemia [Not Recovered/Not Resolved]
  - Hypokalaemia [Not Recovered/Not Resolved]
  - Pain in extremity [Not Recovered/Not Resolved]
  - Device related sepsis [Not Recovered/Not Resolved]
  - Lung infiltration [Not Recovered/Not Resolved]
  - Hyperuricaemia [Unknown]
  - Leukocytosis [Not Recovered/Not Resolved]
  - Urinary tract infection [Unknown]
  - Paraparesis [Unknown]
  - Respiratory alkalosis [Not Recovered/Not Resolved]
  - Metabolic acidosis [Not Recovered/Not Resolved]
  - Pyrexia [Not Recovered/Not Resolved]
  - Hypoglycaemia [Recovered/Resolved]
  - Decreased appetite [Recovered/Resolved]
  - Arthralgia [Recovered/Resolved]
  - Fall [Recovered/Resolved]
  - Hordeolum [Recovered/Resolved]
  - Dysuria [Recovered/Resolved]
  - Hypoperfusion [Unknown]
  - Tumour marker increased [Unknown]
  - Tachypnoea [Unknown]
  - Hyperosmolar state [Unknown]
  - Sinus tachycardia [Unknown]
  - Lupus enteritis [Unknown]
  - Anaemia [Unknown]
  - Bradycardia [Not Recovered/Not Resolved]
  - Use of accessory respiratory muscles [Unknown]
  - Hypoalbuminaemia [Unknown]
  - Gastrointestinal wall thickening [Unknown]
  - Toxoplasmosis [Unknown]
  - Psychotic disorder [Unknown]
  - Nocturnal dyspnoea [Unknown]
  - C-reactive protein increased [Unknown]
  - Incorrect dose administered [Unknown]
  - Inappropriate schedule of product administration [Unknown]

NARRATIVE: CASE EVENT DATE: 20221005
